FAERS Safety Report 18252463 (Version 1)
Quarter: 2020Q3

REPORT INFORMATION
  Report Type: Spontaneous
  Country: US (occurrence: US)
  Receive Date: 20200910
  Receipt Date: 20200910
  Transmission Date: 20201103
  Serious: Yes (Hospitalization)
  Sender: FDA-Public Use
  Company Number: None

PATIENT
  Age: 73 Year
  Sex: Male
  Weight: 93.9 kg

DRUGS (1)
  1. ERBITUX [Suspect]
     Active Substance: CETUXIMAB
     Dates: end: 20200831

REACTIONS (5)
  - Flushing [None]
  - Dyspnoea [None]
  - Unresponsive to stimuli [None]
  - Mydriasis [None]
  - Chest discomfort [None]

NARRATIVE: CASE EVENT DATE: 20200831
